FAERS Safety Report 6403325-3 (Version None)
Quarter: 2009Q4

REPORT INFORMATION
  Report Type: 
  Country: None (occurrence: None)
  Receive Date: 20091016
  Receipt Date: 20091008
  Transmission Date: 20100525
  Serious: No
  Sender: FDA-Public Use
  Company Number: US-B.I. PHARMACEUTICALS,INC./RIDGEFIELD-2009-BP-11850BP

PATIENT
  Sex: Male

DRUGS (7)
  1. SPIRIVA [Suspect]
     Indication: CHRONIC OBSTRUCTIVE PULMONARY DISEASE
     Dosage: 18 MCG
     Route: 055
     Dates: start: 20070101
  2. JANUMET [Concomitant]
     Indication: DIABETES MELLITUS
     Dates: start: 19990101
  3. GLIPIZIDE [Concomitant]
     Indication: DIABETES MELLITUS
     Dates: start: 19990101
  4. DIGOXIN [Concomitant]
     Indication: CARDIAC DISORDER
     Dates: start: 20050101
  5. ALBUTEROL [Concomitant]
     Indication: CHRONIC OBSTRUCTIVE PULMONARY DISEASE
     Dates: start: 19990101
  6. FLOVENT [Concomitant]
     Indication: CHRONIC OBSTRUCTIVE PULMONARY DISEASE
     Dates: start: 19990101
  7. PROVENTIL-HFA [Concomitant]
     Dates: start: 19990101

REACTIONS (1)
  - DEMENTIA [None]
